FAERS Safety Report 6949985-X (Version None)
Quarter: 2010Q3

REPORT INFORMATION
  Report Type: 
  Country: None (occurrence: None)
  Receive Date: 20100828
  Receipt Date: 20100126
  Transmission Date: 20110219
  Serious: No
  Sender: FDA-Public Use
  Company Number: US-ABBOTT-10P-163-0622353-00

PATIENT
  Sex: Female

DRUGS (2)
  1. NIASPAN [Suspect]
     Indication: BLOOD CHOLESTEROL INCREASED
     Dates: start: 20100125
  2. NIASPAN [Suspect]
     Dates: start: 20100118, end: 20100125

REACTIONS (2)
  - FEELING HOT [None]
  - SKIN BURNING SENSATION [None]
